FAERS Safety Report 24106728 (Version 1)
Quarter: 2024Q3

REPORT INFORMATION
  Report Type: Spontaneous
  Country: US (occurrence: US)
  Receive Date: 20240717
  Receipt Date: 20240717
  Transmission Date: 20241016
  Serious: No
  Sender: BRISTOL MYERS SQUIBB
  Company Number: US-BRISTOL-MYERS SQUIBB COMPANY-2024-112973

PATIENT
  Age: 62 Year
  Sex: Female

DRUGS (7)
  1. REVLIMID [Suspect]
     Active Substance: LENALIDOMIDE
     Indication: Plasma cell myeloma
     Route: 048
     Dates: start: 20231125
  2. DEXAMETHASONE [Concomitant]
     Active Substance: DEXAMETHASONE
  3. ACETAMINOPHEN [Concomitant]
     Active Substance: ACETAMINOPHEN
  4. DARZALEX [Concomitant]
     Active Substance: DARATUMUMAB
     Dosage: SOL 100MG/5M
  5. LISINOPRIL [Concomitant]
     Active Substance: LISINOPRIL
  6. VALACYCLOVIR [Concomitant]
     Active Substance: VALACYCLOVIR HYDROCHLORIDE
  7. VELCADE [Concomitant]
     Active Substance: BORTEZOMIB

REACTIONS (3)
  - Fluid retention [Unknown]
  - Peripheral swelling [Unknown]
  - Rash [Unknown]
